APPROVED DRUG PRODUCT: SODIUM CHLORIDE 0.9% AND POTASSIUM CHLORIDE 0.075% IN PLASTIC CONTAINER
Active Ingredient: POTASSIUM CHLORIDE; SODIUM CHLORIDE
Strength: 75MG/100ML;900MG/100ML
Dosage Form/Route: INJECTABLE;INJECTION
Application: N018722 | Product #001
Applicant: B BRAUN MEDICAL INC
Approved: Nov 9, 1982 | RLD: No | RS: No | Type: DISCN